FAERS Safety Report 9869245 (Version 1)
Quarter: 2014Q1

REPORT INFORMATION
  Report Type: Report from Study
  Country: US (occurrence: US)
  Receive Date: 20140205
  Receipt Date: 20140205
  Transmission Date: 20141002
  Serious: Yes (Hospitalization)
  Sender: FDA-Public Use
  Company Number: PHEH2014US002201

PATIENT
  Age: 26 Year
  Sex: Male

DRUGS (5)
  1. TOBI PODHALER [Suspect]
     Dosage: 4 DF, (CAPSULES) BID FOR 28 DAYS ON AND 28 DAYS OFF
     Route: 055
     Dates: start: 201309
  2. PULMOZYME [Concomitant]
     Dosage: UNK UKN, UNK
  3. AZITHROMYCIN [Concomitant]
     Dosage: UNK UKN, UNK
  4. ZENPEP [Concomitant]
     Dosage: UNK UKN, UNK
  5. ALBUTEROL [Concomitant]
     Dosage: UNK UKN, UNK

REACTIONS (3)
  - Pneumonia [Recovered/Resolved]
  - Infection [Recovered/Resolved]
  - Haemoptysis [Recovered/Resolved]
